FAERS Safety Report 8501528 (Version 2)
Quarter: 2012Q4

REPORT INFORMATION
  Report Type: 
  Country: US (occurrence: US)
  Receive Date: 20120410
  Receipt Date: 20120829
  Transmission Date: 20130627
  Serious: Yes (Hospitalization)
  Sender: FDA-Public Use
  Company Number: US-BAYER-2012-032806

PATIENT
  Age: 22 Year
  Sex: Female
  Weight: 68.03 kg

DRUGS (4)
  1. YAZ [Suspect]
     Indication: CONTRACEPTION
     Dosage: UNK
     Dates: start: 20070817, end: 201005
  2. ALBUTEROL [Concomitant]
     Dosage: UNK
     Dates: start: 2000
  3. ADVIL [Concomitant]
     Dosage: unk unk PRN
  4. ORTHO EVRA [Concomitant]
     Dosage: UNK
     Dates: start: 20100421

REACTIONS (7)
  - Cholecystitis [None]
  - Injury [None]
  - Vomiting [None]
  - Nausea [None]
  - Abdominal pain [None]
  - Back pain [None]
  - Pain [None]
